FAERS Safety Report 19650094 (Version 2)
Quarter: 2021Q3

REPORT INFORMATION
  Report Type: Report from Study
  Country: UA (occurrence: UA)
  Receive Date: 20210803
  Receipt Date: 20210809
  Transmission Date: 20211014
  Serious: Yes (Life-Threatening, Hospitalization)
  Sender: FDA-Public Use
  Company Number: NVSC2021UA172544

PATIENT
  Age: 22 Month
  Sex: Female
  Weight: 10.4 kg

DRUGS (3)
  1. PREDNISOLONE. [Concomitant]
     Active Substance: PREDNISOLONE
     Indication: SPINAL MUSCULAR ATROPHY
     Dosage: 1 MG/KG, QD
     Route: 065
     Dates: start: 20210718, end: 20210725
  2. ZOLGENSMA [Suspect]
     Active Substance: ONASEMNOGENE ABEPARVOVEC-XIOI
     Indication: SPINAL MUSCULAR ATROPHY
     Dosage: 57.8 ML
     Route: 042
     Dates: start: 20210719, end: 20210719
  3. PREDNISOLONE. [Concomitant]
     Active Substance: PREDNISOLONE
     Dosage: 2 MG/KG, QD
     Route: 065
     Dates: start: 20210726, end: 20210802

REACTIONS (9)
  - Hypercholesterolaemia [Not Recovered/Not Resolved]
  - Haematuria [Not Recovered/Not Resolved]
  - Thrombocytopenia [Recovering/Resolving]
  - Aspartate aminotransferase increased [Unknown]
  - Troponin I increased [Unknown]
  - Proteinuria [Not Recovered/Not Resolved]
  - Alanine aminotransferase increased [Unknown]
  - Nephrotic syndrome [Not Recovered/Not Resolved]
  - Hypertension [Not Recovered/Not Resolved]

NARRATIVE: CASE EVENT DATE: 20210726
